FAERS Safety Report 17217637 (Version 3)
Quarter: 2020Q1

REPORT INFORMATION
  Report Type: Report from Study
  Country: US (occurrence: US)
  Receive Date: 20191231
  Receipt Date: 20200207
  Transmission Date: 20200409
  Serious: No
  Sender: FDA-Public Use
  Company Number: NVSC2019US083106

PATIENT
  Sex: Female

DRUGS (2)
  1. GILENYA [Suspect]
     Active Substance: FINGOLIMOD HYDROCHLORIDE
     Route: 048
  2. GILENYA [Suspect]
     Active Substance: FINGOLIMOD HYDROCHLORIDE
     Indication: MULTIPLE SCLEROSIS
     Dosage: 0.5 MG, QD
     Route: 048

REACTIONS (9)
  - Rash [Unknown]
  - Abdominal discomfort [Unknown]
  - Amnesia [Unknown]
  - Tremor [Unknown]
  - Decubitus ulcer [Unknown]
  - Product dose omission [Unknown]
  - Musculoskeletal discomfort [Unknown]
  - Dysuria [Unknown]
  - Movement disorder [Unknown]
